FAERS Safety Report 5868731-4 (Version None)
Quarter: 2008Q3

REPORT INFORMATION
  Report Type: 
  Country: None (occurrence: None)
  Receive Date: 20080903
  Receipt Date: 20080825
  Transmission Date: 20090109
  Serious: Yes (Other)
  Sender: FDA-Public Use
  Company Number: ES-CELGENEUS-144-21880-08081305

PATIENT
  Age: 57 Year
  Sex: Female

DRUGS (4)
  1. REVLIMID [Suspect]
     Indication: MULTIPLE MYELOMA
     Route: 048
     Dates: start: 20071025, end: 20071114
  2. DEXAMETHASONE TAB [Interacting]
     Indication: MULTIPLE MYELOMA
     Route: 065
     Dates: start: 20071024, end: 20071114
  3. HIDROXIL B12 B6 B1 [Concomitant]
     Indication: PAIN
     Route: 048
     Dates: start: 20070705
  4. LYRICA [Concomitant]
     Indication: NEURALGIA
     Route: 048
     Dates: start: 20070705

REACTIONS (1)
  - DEMYELINATING POLYNEUROPATHY [None]
